FAERS Safety Report 8198165-1 (Version None)
Quarter: 2012Q1

REPORT INFORMATION
  Report Type: 
  Country: None (occurrence: None)
  Receive Date: 20120229
  Receipt Date: 20120224
  Transmission Date: 20120608
  Serious: Yes (Hospitalization, Other)
  Sender: FDA-Public Use
  Company Number: 2012MA002498

PATIENT
  Sex: Female

DRUGS (1)
  1. DIGOXIN [Suspect]
     Indication: ATRIAL FIBRILLATION
     Dosage: 0.25 MG, QD, PO
     Route: 048
     Dates: start: 20070608, end: 20070707

REACTIONS (15)
  - DYSPNOEA [None]
  - NAUSEA [None]
  - PALPITATIONS [None]
  - ATRIAL FIBRILLATION [None]
  - ASTHENIA [None]
  - BALANCE DISORDER [None]
  - TOXICITY TO VARIOUS AGENTS [None]
  - DIZZINESS [None]
  - INJURY [None]
  - CARDIAC FLUTTER [None]
  - EMOTIONAL DISORDER [None]
  - CHEST PAIN [None]
  - BLOOD CHOLESTEROL INCREASED [None]
  - RENAL FAILURE [None]
  - HEART RATE IRREGULAR [None]
